FAERS Safety Report 9720459 (Version 6)
Quarter: 2014Q2

REPORT INFORMATION
  Report Type: Report from Study
  Country: US (occurrence: US)
  Receive Date: 20131129
  Receipt Date: 20140630
  Transmission Date: 20141212
  Serious: Yes (Hospitalization)
  Sender: FDA-Public Use
  Company Number: US-JNJFOC-20131113836

PATIENT
  Age: 17 Year
  Sex: Female
  Weight: 64.8 kg

DRUGS (10)
  1. REMICADE [Suspect]
     Indication: INFLAMMATORY BOWEL DISEASE
     Route: 042
     Dates: start: 20130114
  2. REMICADE [Suspect]
     Indication: INFLAMMATORY BOWEL DISEASE
     Route: 042
     Dates: start: 20131231
  3. REMICADE [Suspect]
     Indication: INFLAMMATORY BOWEL DISEASE
     Route: 042
     Dates: start: 20131226
  4. REMICADE [Suspect]
     Indication: INFLAMMATORY BOWEL DISEASE
     Route: 042
     Dates: start: 20110713
  5. REMICADE [Suspect]
     Indication: INFLAMMATORY BOWEL DISEASE
     Route: 042
     Dates: start: 20110630
  6. TYLENOL PM [Concomitant]
     Route: 065
  7. 5-ASA [Concomitant]
     Route: 048
  8. LITHIUM [Concomitant]
     Route: 065
  9. GEODON [Concomitant]
     Route: 065
  10. ATIVAN [Concomitant]
     Route: 065

REACTIONS (2)
  - Anal abscess [Recovered/Resolved]
  - Inflammatory bowel disease [Recovered/Resolved]
